FAERS Safety Report 8826709 (Version 4)
Quarter: 2013Q2

REPORT INFORMATION
  Report Type: Spontaneous
  Country: US (occurrence: US)
  Receive Date: 20121005
  Receipt Date: 20130510
  Transmission Date: 20140414
  Serious: Yes (Hospitalization)
  Sender: FDA-Public Use
  Company Number: US-GLAXOSMITHKLINE-A0909980A

PATIENT
  Age: 41 Year
  Sex: Female
  Weight: 91 kg

DRUGS (15)
  1. FLOLAN [Suspect]
     Indication: PULMONARY ARTERIAL HYPERTENSION
     Dosage: 50NGKM CONTINUOUS
     Route: 042
     Dates: start: 20061023
  2. CELEXA [Concomitant]
  3. DIGOXIN [Concomitant]
  4. LASIX [Concomitant]
  5. METFORMIN HCL [Concomitant]
  6. METOLAZONE [Concomitant]
  7. MULTIVITAMIN [Concomitant]
  8. NEURONTIN [Concomitant]
  9. OXYGEN [Concomitant]
  10. POTASSIUM CL [Concomitant]
  11. REVATIO [Concomitant]
  12. SPIRIVA [Concomitant]
  13. SPIRONOLACTONE [Concomitant]
  14. TRACLEER [Concomitant]
  15. WARFARIN [Concomitant]

REACTIONS (11)
  - Pneumonia [Unknown]
  - Diabetes mellitus [Unknown]
  - Pharyngitis streptococcal [Unknown]
  - Device related infection [Unknown]
  - Lymphadenopathy [Unknown]
  - Influenza [Unknown]
  - Pyrexia [Unknown]
  - Catheter site erythema [Unknown]
  - Catheter site pain [Unknown]
  - Catheter site swelling [Unknown]
  - Upper respiratory tract infection [Unknown]
